FAERS Safety Report 6747023-5 (Version None)
Quarter: 2010Q2

REPORT INFORMATION
  Report Type: 
  Country: None (occurrence: None)
  Receive Date: 20100528
  Receipt Date: 20100527
  Transmission Date: 20101027
  Serious: Yes (Death)
  Sender: FDA-Public Use
  Company Number: PHHO2010DE04445

PATIENT
  Sex: Male

DRUGS (5)
  1. MYFORTIC [Suspect]
     Dosage: UNK
  2. SIMULECT [Concomitant]
  3. SANDIMMUNE [Concomitant]
  4. CORTICOSTEROIDS [Concomitant]
  5. NO TREATMENT RECEIVED NOMED [Suspect]
     Indication: RENAL TRANSPLANT
     Route: 048

REACTIONS (2)
  - DEATH [None]
  - MYOCARDIAL INFARCTION [None]
